FAERS Safety Report 23491782 (Version 6)
Quarter: 2024Q2

REPORT INFORMATION
  Report Type: Spontaneous
  Country: DE (occurrence: DE)
  Receive Date: 20240207
  Receipt Date: 20240429
  Transmission Date: 20240716
  Serious: Yes (Other)
  Sender: FDA-Public Use
  Company Number: DE-TEVA-VS-3152910

PATIENT
  Age: 54 Year
  Sex: Female

DRUGS (13)
  1. COPAXONE [Suspect]
     Active Substance: GLATIRAMER ACETATE
     Indication: Multiple sclerosis
     Dosage: TIME INTERVAL: 0.33333333 WEEKS
     Route: 065
     Dates: start: 202210
  2. COPAXONE [Suspect]
     Active Substance: GLATIRAMER ACETATE
     Dosage: TIME INTERVAL: 0.33333333 WEEKS: DOSAGE: 40 MG/ML
     Route: 065
     Dates: end: 20240404
  3. ALBUTEROL [Concomitant]
     Active Substance: ALBUTEROL
  4. ASPIRIN [Concomitant]
     Active Substance: ASPIRIN
     Dosage: MORNING, NOON, EVENING, NIGHT
  5. EUTHYROX [Concomitant]
     Active Substance: LEVOTHYROXINE SODIUM
     Dosage: MORNING, NOON, EVENING, NIGHT
  6. EUTHYROX [Concomitant]
     Active Substance: LEVOTHYROXINE SODIUM
     Dosage: MORNING, NOON, EVENING, NIGHT
  7. VALSARTAN AL [Concomitant]
     Dosage: MORNING, NOON, EVENING, NIGHT
  8. CHOLECALCIFEROL [Concomitant]
     Active Substance: CHOLECALCIFEROL
  9. Salbutamol1 A Pharma [Concomitant]
     Dosage: PRESSURIZED GAS INHALATION, AS REQUIRED
  10. Beclomet [Concomitant]
     Dosage: EASYHALER, 0.1. MG 200 ED STARTER KIT, IN CASE OF INFECTION OR ALLERGY.
  11. CETIRIZINE HYDROCHLORIDE [Concomitant]
     Active Substance: CETIRIZINE HYDROCHLORIDE
     Indication: Hypersensitivity
     Dosage: PUREN, MORNING, NOON, EVENING, NIGHT
  12. MAGNESIUMOROTAT [Concomitant]
     Dosage: MORNING, NOON, EVENING, NIGHT
  13. NALOXONE HYDROCHLORIDE\TILIDINE HYDROCHLORIDE [Concomitant]
     Active Substance: NALOXONE HYDROCHLORIDE\TILIDINE HYDROCHLORIDE
     Indication: Pain
     Dosage: 50/4 RETARD - 1 A PHARMA, STRENGTH: 50 MG, 4 MG, RETARD TABLET, DOSAGE (MORNING, NOON, EVENING, N...

REACTIONS (16)
  - Granuloma annulare [Not Recovered/Not Resolved]
  - Injection site urticaria [Unknown]
  - Injection site mass [Recovered/Resolved]
  - Skin discolouration [Not Recovered/Not Resolved]
  - Injection site induration [Not Recovered/Not Resolved]
  - Injection site erythema [Not Recovered/Not Resolved]
  - Immediate post-injection reaction [Not Recovered/Not Resolved]
  - Injection site pruritus [Not Recovered/Not Resolved]
  - Injection site haematoma [Unknown]
  - Heart rate increased [Unknown]
  - Dyspnoea [Unknown]
  - Weight increased [Unknown]
  - Soft tissue swelling [Unknown]
  - Vein discolouration [Unknown]
  - Feeling abnormal [Unknown]
  - Vaginal infection [Unknown]

NARRATIVE: CASE EVENT DATE: 20220101
